FAERS Safety Report 22137994 (Version 1)
Quarter: 2023Q1

REPORT INFORMATION
  Report Type: Spontaneous
  Country: US (occurrence: US)
  Receive Date: 20230325
  Receipt Date: 20230325
  Transmission Date: 20230418
  Serious: No
  Sender: FDA-Public Use
  Company Number: US-drreddys-SPO/USA/23/0161730

PATIENT
  Age: 17 Year

DRUGS (3)
  1. ZENATANE [Suspect]
     Active Substance: ISOTRETINOIN
     Indication: Product used for unknown indication
     Dosage: RMA ISSUE DATE: 05 AUGUST 2022 11:21:33 AM, 11 OCTOBER 2022 05:02:22 PM, 11 NOVEMBER 2022 06:07:57 P
  2. ZENATANE [Suspect]
     Active Substance: ISOTRETINOIN
     Dosage: RMA ISSUE DATE: 08 SEPTEMBER 2022 04:53:26 PM
  3. ZENATANE [Suspect]
     Active Substance: ISOTRETINOIN
     Dosage: RMA ISSUE DATE: 12 DECEMBER 2022 06:11:27 PM

REACTIONS (1)
  - Laboratory test abnormal [Unknown]
